FAERS Safety Report 6913499-3 (Version None)
Quarter: 2010Q3

REPORT INFORMATION
  Report Type: 
  Country: None (occurrence: None)
  Receive Date: 20100805
  Receipt Date: 20100805
  Transmission Date: 20110219
  Serious: Yes (Disabling)
  Sender: FDA-Public Use
  Company Number: None

PATIENT
  Age: 62 Year
  Sex: Female
  Weight: 54.4316 kg

DRUGS (1)
  1. FENTANYL CITRATE [Suspect]
     Indication: BACK PAIN
     Dosage: 50 MCG/H 1 EVERY 3 DAYS TRANSDERMAL
     Route: 062
     Dates: start: 20090509, end: 20090513

REACTIONS (1)
  - MENIERE'S DISEASE [None]
